FAERS Safety Report 12943398 (Version 13)
Quarter: 2023Q4

REPORT INFORMATION
  Report Type: Spontaneous
  Country: US (occurrence: US)
  Receive Date: 20161115
  Receipt Date: 20231122
  Transmission Date: 20240110
  Serious: Yes (Hospitalization, Other)
  Sender: FDA-Public Use
  Company Number: US-PFIZER INC-2016526407

PATIENT
  Age: 60 Year
  Sex: Male
  Weight: 113.4 kg

DRUGS (19)
  1. SOMAVERT [Suspect]
     Active Substance: PEGVISOMANT
     Indication: Acromegaly
     Dosage: 25 MG, UNK
     Dates: start: 2013, end: 201607
  2. SOMAVERT [Suspect]
     Active Substance: PEGVISOMANT
     Dosage: UNK
     Dates: start: 201401, end: 20151009
  3. SOMAVERT [Suspect]
     Active Substance: PEGVISOMANT
     Dosage: 30 MG, (EVERY OTHER DAY)
     Dates: start: 20140317
  4. SOMAVERT [Suspect]
     Active Substance: PEGVISOMANT
     Dosage: 30 MG, 1X/DAY (ROTATES SITES TO THIGHS, BELLY AND ARMS)
     Dates: start: 201612, end: 20170628
  5. SOMAVERT [Suspect]
     Active Substance: PEGVISOMANT
     Dosage: 25 MG, DAILY
     Dates: start: 20161201, end: 20181209
  6. SOMAVERT [Suspect]
     Active Substance: PEGVISOMANT
     Dosage: 30 MG, UNK
     Dates: start: 20161108
  7. SOMAVERT [Suspect]
     Active Substance: PEGVISOMANT
     Dosage: 30 MG, DAILY
     Route: 058
     Dates: start: 20181209
  8. SOMAVERT [Suspect]
     Active Substance: PEGVISOMANT
     Dosage: 30 MG,DAILY (7 DAYS A WEEK)
  9. SOMAVERT [Suspect]
     Active Substance: PEGVISOMANT
     Dosage: 30 MG, 1X/DAY (ROTATES SITES TO THIGHS, BELLY AND ARMS)
  10. SOMAVERT [Suspect]
     Active Substance: PEGVISOMANT
     Dosage: 20 MG, EVERY OTHER DAY
  11. SOMAVERT [Suspect]
     Active Substance: PEGVISOMANT
     Dosage: UNK
  12. SOMAVERT [Suspect]
     Active Substance: PEGVISOMANT
     Dosage: 30 MG EVERY OTHER DAY
  13. LANREOTIDE ACETATE [Suspect]
     Active Substance: LANREOTIDE ACETATE
     Indication: Acromegaly
     Dosage: UNK
     Dates: end: 201607
  14. LANREOTIDE ACETATE [Suspect]
     Active Substance: LANREOTIDE ACETATE
     Dosage: 90 MG, EVERY 28 DAYS
     Dates: start: 201708
  15. LANREOTIDE ACETATE [Suspect]
     Active Substance: LANREOTIDE ACETATE
     Dosage: 90 MG, EVERY 28 DAYS
  16. AXIRON [Concomitant]
     Active Substance: TESTOSTERONE
     Indication: Androgen deficiency
     Dosage: 30 MG, UNK
     Route: 061
  17. SYNTHROID [Concomitant]
     Active Substance: LEVOTHYROXINE SODIUM
     Indication: Thyroid disorder
     Dosage: 100 UG, UNK
  18. VERAPAMIL [Concomitant]
     Active Substance: VERAPAMIL HYDROCHLORIDE
     Dosage: 180 MG, UNK
  19. MAGNESIUM [Concomitant]
     Active Substance: MAGNESIUM
     Indication: Headache
     Dosage: 400 MG, DAILY

REACTIONS (8)
  - Pituitary tumour [Not Recovered/Not Resolved]
  - Spinal operation [Unknown]
  - Therapeutic product effect incomplete [Unknown]
  - Headache [Not Recovered/Not Resolved]
  - Injection site bruising [Unknown]
  - Memory impairment [Unknown]
  - Off label use [Unknown]
  - Product dose omission issue [Unknown]

NARRATIVE: CASE EVENT DATE: 20160727
